FAERS Safety Report 8426140-8 (Version None)
Quarter: 2012Q2

REPORT INFORMATION
  Report Type: 
  Country: None (occurrence: None)
  Receive Date: 20120323
  Receipt Date: 20110520
  Transmission Date: 20120825
  Serious: Yes (Hospitalization)
  Sender: FDA-Public Use
  Company Number: 163-21880-11043055

PATIENT
  Age: 76 Year
  Sex: Male
  Weight: 158 kg

DRUGS (13)
  1. SIMVASTATIN [Concomitant]
  2. AGGRENOX(ASASANTIN)(UNKNOWN) [Concomitant]
  3. IMODIUM [Concomitant]
  4. FLOMAX(TAMSULOSIN HYDROCHLORIDE)(UNKNOWN) [Concomitant]
  5. FINASTERIDE(FINASTERIDE)(UNKNOWN) [Concomitant]
  6. DEXAMETHASONE [Concomitant]
  7. MIRALAX(MACROGOL)(UNKNOWN) [Concomitant]
  8. REVLIMID [Suspect]
     Indication: MULTIPLE MYELOMA
     Dosage: 10 MG, 1 IN 1 D, PO,  20 MG, 2 IN 1 D, PO,  5 MG, DAILY X 21 DAYS, 7 DAYS OFF, PO
     Route: 048
     Dates: start: 20090901
  9. REVLIMID [Suspect]
     Indication: MULTIPLE MYELOMA
     Dosage: 10 MG, 1 IN 1 D, PO,  20 MG, 2 IN 1 D, PO,  5 MG, DAILY X 21 DAYS, 7 DAYS OFF, PO
     Route: 048
     Dates: start: 20061001
  10. REVLIMID [Suspect]
     Indication: MULTIPLE MYELOMA
     Dosage: 10 MG, 1 IN 1 D, PO,  20 MG, 2 IN 1 D, PO,  5 MG, DAILY X 21 DAYS, 7 DAYS OFF, PO
     Route: 048
     Dates: start: 20080201
  11. REVLIMID [Suspect]
     Indication: MULTIPLE MYELOMA
     Dosage: 10 MG, 1 IN 1 D, PO,  20 MG, 2 IN 1 D, PO,  5 MG, DAILY X 21 DAYS, 7 DAYS OFF, PO
     Route: 048
     Dates: start: 20100401
  12. VALACYCLOVIR(VALACICLOVIR)(UNKNOWN) [Concomitant]
  13. CLONAZEPAM [Concomitant]

REACTIONS (1)
  - PNEUMONIA [None]
